FAERS Safety Report 9073689 (Version 1)
Quarter: 2013Q1

REPORT INFORMATION
  Report Type: Report from Study
  Country: US (occurrence: US)
  Receive Date: 20130129
  Receipt Date: 20130129
  Transmission Date: 20140127
  Serious: No
  Sender: FDA-Public Use
  Company Number: US-ABBOTT-12P-163-0927768-00

PATIENT
  Age: 50 Year
  Sex: Female

DRUGS (13)
  1. HUMIRA 40 MG/0.8 ML PEN [Suspect]
     Indication: RHEUMATOID ARTHRITIS
     Dates: start: 20120222
  2. METHOTREXATE [Concomitant]
     Indication: PRODUCT USED FOR UNKNOWN INDICATION
     Dosage: 2.5 MG, 8 TABS ONCE WEEKLY
  3. METHOTREXATE [Concomitant]
     Dosage: 2.5 MG, 6 TABS ONCE WEEKLY
     Route: 048
  4. PREDNISONE [Concomitant]
     Indication: INFLAMMATION
     Dosage: 3 MG DAILY
  5. SYNTHROID [Concomitant]
     Indication: THYROID DISORDER
     Dosage: 150 MCG DAILY (GENERIC)
  6. VENLAFAXINE [Concomitant]
     Indication: ANXIETY
     Dosage: 37.5 MG DAILY, XR, (GENERIC)
  7. VENLAFAXINE [Concomitant]
     Indication: DEPRESSION
  8. VENLAFAXINE [Concomitant]
     Indication: STRESS
  9. FOLIC ACID [Concomitant]
     Indication: PRODUCT USED FOR UNKNOWN INDICATION
     Dosage: 1 MG DAILY
  10. ALPRAZOLAM [Concomitant]
     Indication: DEPRESSION
  11. HYDROCODONE [Concomitant]
     Indication: PAIN
     Dosage: 5/500 THREE TIMES DAILY
  12. CALCIUM WITH VITAMIN D [Concomitant]
     Indication: ROUTINE HEALTH MAINTENANCE
     Dosage: 600 MG DAILY
  13. VITAMIN C [Concomitant]
     Indication: ROUTINE HEALTH MAINTENANCE
     Dosage: 500 MG DAILY

REACTIONS (7)
  - Hair growth abnormal [Not Recovered/Not Resolved]
  - Hair growth abnormal [Unknown]
  - Hair growth abnormal [Unknown]
  - Nausea [Unknown]
  - Vomiting [Unknown]
  - Diarrhoea [Unknown]
  - Injection site pruritus [Recovered/Resolved]
